FAERS Safety Report 12526603 (Version 2)
Quarter: 2016Q3

REPORT INFORMATION
  Report Type: Report from Study
  Country: AR (occurrence: AR)
  Receive Date: 20160705
  Receipt Date: 20160706
  Transmission Date: 20161109
  Serious: Yes (Death)
  Sender: FDA-Public Use
  Company Number: PHHY2016AR091265

PATIENT
  Age: 88 Year
  Sex: Female

DRUGS (3)
  1. SEEBRI BREEZHALER [Suspect]
     Active Substance: GLYCOPYRROLATE
     Indication: CHRONIC OBSTRUCTIVE PULMONARY DISEASE
     Dosage: QD, ONE IN THE MORNING
     Route: 065
     Dates: start: 201504
  2. ONBREZ BREEZHALER [Suspect]
     Active Substance: INDACATEROL
     Indication: CHRONIC OBSTRUCTIVE PULMONARY DISEASE
     Dosage: QD, ONE IN THE NIGHT
     Route: 065
     Dates: start: 201504
  3. LEVOTHYROXINE. [Concomitant]
     Active Substance: LEVOTHYROXINE
     Indication: HYPOTHYROIDISM
     Dosage: 0.5 OT, (UNITS NOT PROVIDED)
     Route: 065

REACTIONS (2)
  - Cardio-respiratory arrest [Fatal]
  - Mental disorder [Unknown]

NARRATIVE: CASE EVENT DATE: 20160417
